FAERS Safety Report 7465288-1 (Version None)
Quarter: 2011Q1

REPORT INFORMATION
  Report Type: 
  Country: None (occurrence: None)
  Receive Date: 20110302
  Receipt Date: 20101217
  Transmission Date: 20110831
  Serious: Yes (Hospitalization, Disabling, Other)
  Sender: FDA-Public Use
  Company Number: 163-21880-10072543

PATIENT
  Age: 66 Year
  Sex: Female

DRUGS (6)
  1. PREVACID [Concomitant]
  2. SYNTHROID [Concomitant]
  3. CLONIDINE [Concomitant]
  4. METFORMIN (METFORMIN) [Concomitant]
  5. REVLIMID [Suspect]
     Indication: MULTIPLE MYELOMA
     Dosage: 25 MG, 1 IN 1 D, PO, 10 MG, 1 IN 1 D, PO
     Route: 048
     Dates: start: 20100106, end: 20100401
  6. REVLIMID [Suspect]
     Indication: MULTIPLE MYELOMA
     Dosage: 25 MG, 1 IN 1 D, PO, 10 MG, 1 IN 1 D, PO
     Route: 048
     Dates: start: 20100427, end: 20100729

REACTIONS (11)
  - INSOMNIA [None]
  - PNEUMONIA [None]
  - DRUG INEFFECTIVE [None]
  - RESPIRATORY DISTRESS [None]
  - FATIGUE [None]
  - DISTURBANCE IN ATTENTION [None]
  - NEUROPATHY PERIPHERAL [None]
  - ASTHENIA [None]
  - SWELLING [None]
  - SEPSIS [None]
  - CARDIAC FAILURE CONGESTIVE [None]
